FAERS Safety Report 5127268-0 (Version None)
Quarter: 2006Q4

REPORT INFORMATION
  Report Type: 
  Country: None (occurrence: None)
  Receive Date: 20061010
  Receipt Date: 20060928
  Transmission Date: 20070319
  Serious: Yes (Hospitalization)
  Sender: FDA-Public Use
  Company Number: 230085

PATIENT
  Age: 4 Year
  Sex: Male

DRUGS (2)
  1. MABTHERA(RITUXIMAB) CONC FOR SOLUTION FOR INFUSION [Suspect]
     Indication: LYMPHOPROLIFERATIVE DISORDER
     Dosage: INTRAVENOUS
     Route: 042
     Dates: start: 20060501, end: 20060601
  2. PROGRAF [Concomitant]

REACTIONS (5)
  - CONDITION AGGRAVATED [None]
  - ENCEPHALITIS [None]
  - ENCEPHALOPATHY [None]
  - NUCLEAR MAGNETIC RESONANCE IMAGING BRAIN ABNORMAL [None]
  - VIRAL INFECTION [None]
